FAERS Safety Report 24555449 (Version 1)
Quarter: 2024Q4

REPORT INFORMATION
  Report Type: Spontaneous
  Country: CN (occurrence: CN)
  Receive Date: 20241028
  Receipt Date: 20241028
  Transmission Date: 20250115
  Serious: Yes (Hospitalization)
  Sender: BEIGENE
  Company Number: CN-BEIGENE-BGN-2024-016661

PATIENT

DRUGS (3)
  1. TISLELIZUMAB [Suspect]
     Active Substance: TISLELIZUMAB
     Indication: Bone cancer
     Dosage: 200 MILLIGRAM
     Route: 041
     Dates: start: 20240924
  2. CISPLATIN [Suspect]
     Active Substance: CISPLATIN
     Indication: Bone cancer
     Dosage: 50 MILLIGRAM
     Route: 041
     Dates: start: 20240924
  3. DOXORUBICIN HYDROCHLORIDE [Suspect]
     Active Substance: DOXORUBICIN HYDROCHLORIDE
     Indication: Bone cancer
     Dosage: 50 MILLIGRAM
     Route: 041
     Dates: start: 20240924

REACTIONS (2)
  - Liver injury [Recovering/Resolving]
  - Off label use [Unknown]

NARRATIVE: CASE EVENT DATE: 20240924
